FAERS Safety Report 25474611 (Version 3)
Quarter: 2025Q3

REPORT INFORMATION
  Report Type: Spontaneous
  Country: US (occurrence: US)
  Receive Date: 20250624
  Receipt Date: 20250801
  Transmission Date: 20251020
  Serious: No
  Sender: SANOFI AVENTIS
  Company Number: US-SA-2025SA176483

PATIENT
  Age: 65 Year
  Sex: Female

DRUGS (2)
  1. DUPIXENT [Suspect]
     Active Substance: DUPILUMAB
     Indication: Chronic obstructive pulmonary disease
     Dosage: 300 MG, QOW
     Route: 058
     Dates: start: 202501
  2. OHTUVAYRE [Suspect]
     Active Substance: ENSIFENTRINE

REACTIONS (6)
  - Mental status changes [Unknown]
  - General physical health deterioration [Unknown]
  - Nervousness [Unknown]
  - Insomnia [Unknown]
  - Feeling abnormal [Unknown]
  - Implant site irritation [Unknown]

NARRATIVE: CASE EVENT DATE: 20250101
